FAERS Safety Report 6345078-3 (Version None)
Quarter: 2009Q3

REPORT INFORMATION
  Report Type: 
  Country: None (occurrence: None)
  Receive Date: 20090909
  Receipt Date: 20070604
  Transmission Date: 20100115
  Serious: Yes (Other)
  Sender: FDA-Public Use
  Company Number: US-ASTRAZENECA-2006UW25669

PATIENT
  Age: 18402 Day
  Sex: Female
  Weight: 115.7 kg

DRUGS (6)
  1. SEROQUEL [Suspect]
     Indication: DEPRESSION
     Dosage: 25-200MG
     Route: 048
     Dates: start: 20010228
  2. SEROQUEL [Suspect]
     Route: 048
     Dates: start: 20010701, end: 20060101
  3. OTHER PSYCHIATRIC MEDICATION [Concomitant]
     Dosage: 100MG, 150MG, 1MG
  4. PREDNISONE TAB [Concomitant]
     Dosage: 5-10MG
     Dates: start: 20000121
  5. PROPRANOLOL [Concomitant]
     Dates: start: 19991221
  6. DIAZEPAM [Concomitant]
     Dosage: 5-10MG
     Dates: start: 19991221

REACTIONS (7)
  - DIABETES MELLITUS [None]
  - DIABETES MELLITUS INADEQUATE CONTROL [None]
  - DIABETIC KETOACIDOSIS [None]
  - DIABETIC NEUROPATHY [None]
  - DIABETIC ULCER [None]
  - INJURY [None]
  - TYPE 2 DIABETES MELLITUS [None]
